FAERS Safety Report 25628106 (Version 1)
Quarter: 2025Q3

REPORT INFORMATION
  Report Type: Spontaneous
  Country: US (occurrence: None)
  Receive Date: 20250730
  Receipt Date: 20250730
  Transmission Date: 20251020
  Serious: Yes (Hospitalization, Other)
  Sender: FDA-CTU
  Company Number: None

PATIENT
  Age: 33 Year
  Sex: Female
  Weight: 57.33 kg

DRUGS (2)
  1. CEPHALEXIN [Suspect]
     Active Substance: CEPHALEXIN
     Indication: Psychotic disorder
  2. KEFLEX [Concomitant]
     Active Substance: CEPHALEXIN

REACTIONS (8)
  - Nosocomial infection [None]
  - Arthropod bite [None]
  - Skin infection [None]
  - Drug ineffective [None]
  - Aggression [None]
  - Treatment noncompliance [None]
  - Product communication issue [None]
  - Impaired healing [None]

NARRATIVE: CASE EVENT DATE: 20250724
